FAERS Safety Report 13516802 (Version 3)
Quarter: 2018Q4

REPORT INFORMATION
  Report Type: Report from Study
  Country: IT (occurrence: IT)
  Receive Date: 20170505
  Receipt Date: 20181217
  Transmission Date: 20190204
  Serious: Yes (Hospitalization)
  Sender: FDA-Public Use
  Company Number: IT-ACCORD-051030

PATIENT
  Age: 51 Year
  Sex: Male

DRUGS (2)
  1. ESCITALOPRAM [Suspect]
     Active Substance: ESCITALOPRAM OXALATE
     Dosage: STRENGTH: 10 MG
     Route: 048
     Dates: start: 20170410, end: 20170410
  2. XANAX [Suspect]
     Active Substance: ALPRAZOLAM
     Dosage: STRENGTH: 0.25 MG
     Route: 048
     Dates: start: 20170410, end: 20170410

REACTIONS (4)
  - Drug abuse [Unknown]
  - Intentional self-injury [Unknown]
  - Crying [Unknown]
  - Agitation [Unknown]

NARRATIVE: CASE EVENT DATE: 20170410
